FAERS Safety Report 15920133 (Version 1)
Quarter: 2019Q1

REPORT INFORMATION
  Report Type: Spontaneous
  Country: US (occurrence: US)
  Receive Date: 20190205
  Receipt Date: 20190205
  Transmission Date: 20190417
  Serious: No
  Sender: FDA-Public Use
  Company Number: US-ROCHE-2105313

PATIENT
  Sex: Female
  Weight: 62.2 kg

DRUGS (4)
  1. BENADRYL [Concomitant]
     Active Substance: DIPHENHYDRAMINE HYDROCHLORIDE
     Dosage: BEFORE OMALIZUMAB;ONGOING: UNKNOWN
     Route: 065
  2. HYDROCORTISONE. [Concomitant]
     Active Substance: HYDROCORTISONE
     Dosage: TWO, 10 MG BEFORE OMALIZUMAB INJECTION ;ONGOING: UNKNOWN
     Route: 065
  3. XOLAIR [Suspect]
     Active Substance: OMALIZUMAB
     Indication: IDIOPATHIC URTICARIA
     Dosage: ONGOING: UNKNOWN
     Route: 058
     Dates: start: 20180323
  4. ZYRTEC [Concomitant]
     Active Substance: CETIRIZINE HYDROCHLORIDE
     Dosage: TWO, 10 MG BEFORE OMALIZUMAB INJECTION ;ONGOING: UNKNOWN
     Route: 065

REACTIONS (7)
  - Drug ineffective [Unknown]
  - Inflammation [Unknown]
  - Burning sensation [Unknown]
  - Food allergy [Unknown]
  - Immune system disorder [Unknown]
  - Rosacea [Unknown]
  - Glucose tolerance impaired [Unknown]
